FAERS Safety Report 20688663 (Version 1)
Quarter: 2022Q2

REPORT INFORMATION
  Report Type: Report from Study
  Country: PH (occurrence: PH)
  Receive Date: 20220408
  Receipt Date: 20220408
  Transmission Date: 20220721
  Serious: Yes (Other)
  Sender: FDA-Public Use
  Company Number: PH-JNJFOC-20220364838

PATIENT
  Age: 4 Year
  Sex: Male

DRUGS (10)
  1. REMICADE [Suspect]
     Active Substance: INFLIXIMAB
     Indication: Colitis ulcerative
     Route: 042
     Dates: end: 202110
  2. REMICADE [Suspect]
     Active Substance: INFLIXIMAB
     Route: 042
     Dates: start: 202011, end: 202011
  3. REMICADE [Suspect]
     Active Substance: INFLIXIMAB
     Route: 042
     Dates: start: 202012, end: 202103
  4. REMICADE [Suspect]
     Active Substance: INFLIXIMAB
     Route: 042
     Dates: start: 202104, end: 202104
  5. REMICADE [Suspect]
     Active Substance: INFLIXIMAB
     Route: 042
     Dates: start: 202105, end: 202109
  6. PREDNISOLONE [Concomitant]
     Active Substance: PREDNISOLONE
     Indication: Haemorrhage
     Route: 048
     Dates: start: 202111, end: 202201
  7. PREDNISOLONE [Concomitant]
     Active Substance: PREDNISOLONE
     Route: 048
     Dates: start: 202202
  8. RIFAXIMIN [Concomitant]
     Active Substance: RIFAXIMIN
     Indication: Infection
     Route: 048
     Dates: start: 202110, end: 202112
  9. CIPROFLOXACIN [Concomitant]
     Active Substance: CIPROFLOXACIN
     Indication: Infection
     Route: 048
     Dates: start: 202110, end: 202112
  10. CEFIXIME [Concomitant]
     Active Substance: CEFIXIME
     Indication: Infection
     Route: 048
     Dates: start: 202110, end: 202112

REACTIONS (5)
  - Haemorrhage [Not Recovered/Not Resolved]
  - Infection [Unknown]
  - Drug specific antibody present [Unknown]
  - Off label use [Unknown]
  - Product use issue [Unknown]

NARRATIVE: CASE EVENT DATE: 20201201
